FAERS Safety Report 4361761-3 (Version None)
Quarter: 2004Q2

REPORT INFORMATION
  Report Type: 
  Country: None (occurrence: None)
  Receive Date: 20040521
  Receipt Date: 20040309
  Transmission Date: 20050107
  Serious: No
  Sender: FDA-Public Use
  Company Number: US-GLAXOSMITHKLINE-A0501954A

PATIENT
  Age: 70 Year
  Sex: Male

DRUGS (5)
  1. WELLBUTRIN XL [Suspect]
     Indication: DEPRESSION
     Dosage: 300MG PER DAY
     Route: 048
     Dates: start: 20031205
  2. NORVASC [Concomitant]
  3. DIGITEK [Concomitant]
  4. ACCUPRIL [Concomitant]
  5. ASPIRIN [Concomitant]

REACTIONS (4)
  - DECREASED APPETITE [None]
  - MUSCLE CRAMP [None]
  - PAIN IN EXTREMITY [None]
  - WEIGHT DECREASED [None]
